FAERS Safety Report 13761245 (Version 1)
Quarter: 2017Q3

REPORT INFORMATION
  Report Type: Spontaneous
  Country: DE (occurrence: DE)
  Receive Date: 20170717
  Receipt Date: 20170717
  Transmission Date: 20171127
  Serious: Yes (Hospitalization)
  Sender: FDA-Public Use
  Company Number: DE-LINDE GAS NORTH AMERICA LLC, LINDE GAS PUERTO RICO INC.-DE-LHC-2017157

PATIENT
  Age: 86 Year
  Sex: Female

DRUGS (1)
  1. CONOXIA [Suspect]
     Active Substance: OXYGEN
     Indication: PRODUCT USED FOR UNKNOWN INDICATION

REACTIONS (2)
  - Hypoxia [Unknown]
  - Device malfunction [Unknown]

NARRATIVE: CASE EVENT DATE: 20170710
